FAERS Safety Report 7222847-9 (Version None)
Quarter: 2011Q1

REPORT INFORMATION
  Report Type: 
  Country: None (occurrence: None)
  Receive Date: 20110106
  Receipt Date: 20110106
  Transmission Date: 20110831
  Serious: Yes (Life-Threatening, Disabling, Other)
  Sender: FDA-Public Use
  Company Number: None

PATIENT
  Age: 86 Year
  Sex: Female
  Weight: 58.9676 kg

DRUGS (2)
  1. VITAMIN D [Suspect]
     Dosage: 6 MO. 1-DAY (6 MONTHS AGO)
  2. FLU SHOT [Suspect]

REACTIONS (6)
  - FEELING COLD [None]
  - INFLUENZA [None]
  - COUGH [None]
  - INSOMNIA [None]
  - TREMOR [None]
  - PAIN [None]
